FAERS Safety Report 8200791 (Version 3)
Quarter: 2013Q4

REPORT INFORMATION
  Report Type: Spontaneous
  Country: RO (occurrence: RO)
  Receive Date: 20111026
  Receipt Date: 20131031
  Transmission Date: 20140711
  Serious: Yes (Hospitalization)
  Sender: FDA-Public Use
  Company Number: RO-009507513-1110USA02418

PATIENT
  Age: 62 Year
  Sex: Female

DRUGS (2)
  1. SINGULAIR [Suspect]
     Indication: ASTHMA
     Dosage: 10 MG, QD
     Route: 048
  2. FLUTICASONE PROPIONATE (+) SALMETEROL XINAFOATE [Concomitant]
     Indication: ASTHMA
     Dosage: 500 MG/50 MCG, BID
     Dates: start: 200711

REACTIONS (1)
  - Allergic granulomatous angiitis [Recovered/Resolved]
